FAERS Safety Report 9015293 (Version 2)
Quarter: 2013Q1

REPORT INFORMATION
  Report Type: Spontaneous
  Country: US (occurrence: None)
  Receive Date: 20130103
  Receipt Date: 20130213
  Transmission Date: 20140127
  Serious: Yes (Other)
  Sender: FDA-Public Use
  Company Number: 2012P1068137

PATIENT
  Age: 18 Year
  Sex: Female
  Weight: 52.1 kg

DRUGS (7)
  1. FENTANYL CITRATE [Suspect]
     Indication: PREMEDICATION
     Dates: start: 20121214, end: 20121214
  2. FENTANYL CITRATE [Suspect]
     Indication: PREOPERATIVE CARE
     Dates: start: 20121214, end: 20121214
  3. APREPITANT [Concomitant]
  4. MIDAZOLAM [Concomitant]
  5. DIPHENHYDRAMINE [Concomitant]
  6. SUCCINYLCHOLINE [Concomitant]
  7. MORPHINE [Concomitant]

REACTIONS (2)
  - Sedation [None]
  - Respiratory rate decreased [None]
